FAERS Safety Report 16498189 (Version 1)
Quarter: 2019Q2

REPORT INFORMATION
  Report Type: Spontaneous
  Country: HK (occurrence: HK)
  Receive Date: 20190628
  Receipt Date: 20190628
  Transmission Date: 20190711
  Serious: Yes (Other)
  Sender: FDA-Public Use
  Company Number: HK-009507513-1906HKG010226

PATIENT
  Age: 81 Year
  Sex: Female

DRUGS (2)
  1. ALENDRONATE SODIUM. [Suspect]
     Active Substance: ALENDRONATE SODIUM
     Indication: OSTEOPOROSIS
     Dosage: SHE WAS PUT ON ALENDRONATE FOR TREATING OSTEOPOROSIS 2 MONTHS EARLIER
  2. ALENDRONATE SODIUM. [Suspect]
     Active Substance: ALENDRONATE SODIUM
     Dosage: PATIENT HAD TAKEN THE MEDICINE ON DAILY BASIS FOR 2 WEEKS INSTEAD OF WEEKLY DOSE

REACTIONS (4)
  - Osteonecrosis of jaw [Unknown]
  - Overdose [Unknown]
  - Inappropriate schedule of product administration [Unknown]
  - Infection [Unknown]
